FAERS Safety Report 6329204-8 (Version None)
Quarter: 2009Q3

REPORT INFORMATION
  Report Type: 
  Country: None (occurrence: None)
  Receive Date: 20090826
  Receipt Date: 20090814
  Transmission Date: 20100115
  Serious: Yes (Hospitalization, Other)
  Sender: FDA-Public Use
  Company Number: GB-PFIZER INC-2009254824

PATIENT

DRUGS (4)
  1. EPIRUBICIN HCL [Suspect]
     Indication: ADENOCARCINOMA
     Dosage: UNK
     Route: 042
     Dates: start: 20090702
  2. GLUCOSE [Suspect]
     Dosage: 500 ML, UNK
     Route: 042
     Dates: start: 20090702
  3. ELOXATIN [Suspect]
     Indication: METASTATIC NEOPLASM
     Dosage: 254.8 MG, UNK
     Dates: start: 20090702, end: 20090702
  4. CAPECITABINE [Concomitant]
     Indication: ADENOCARCINOMA
     Dosage: UNK
     Route: 048

REACTIONS (6)
  - C-REACTIVE PROTEIN INCREASED [None]
  - FATIGUE [None]
  - PYREXIA [None]
  - SEPSIS [None]
  - SHOCK [None]
  - VOMITING [None]
